FAERS Safety Report 7837750-0 (Version None)
Quarter: 2011Q4

REPORT INFORMATION
  Report Type: 
  Country: None (occurrence: None)
  Receive Date: 20111024
  Receipt Date: 20101011
  Transmission Date: 20120403
  Serious: No
  Sender: FDA-Public Use
  Company Number: US-BAYER-201036716NA

PATIENT
  Age: 86 Year

DRUGS (6)
  1. CIPROFLOXACIN [Suspect]
     Dosage: UNK
     Dates: start: 20090901
  2. CRESTOR [Concomitant]
  3. EYE MEDICATION [Concomitant]
  4. LISINOPRIL [Concomitant]
  5. PROSCAR [Concomitant]
  6. VITAMIN TAB [Concomitant]

REACTIONS (1)
  - CONSTIPATION [None]
